FAERS Safety Report 11047205 (Version 3)
Quarter: 2015Q4

REPORT INFORMATION
  Report Type: Spontaneous
  Country: PT (occurrence: PT)
  Receive Date: 20150420
  Receipt Date: 20151103
  Transmission Date: 20160304
  Serious: Yes (Life-Threatening)
  Sender: FDA-Public Use
  Company Number: PT-ACTAVIS-2014-20060

PATIENT
  Age: 63 Year
  Sex: Female
  Weight: 80 kg

DRUGS (2)
  1. TRANSTEC [Concomitant]
     Active Substance: BUPRENORPHINE
     Indication: PAIN
     Dosage: 140 ?G, Q1H
     Route: 062
     Dates: end: 20140527
  2. BUPRENORPHINA ACTAVIS [Suspect]
     Active Substance: BUPRENORPHINE
     Indication: PAIN
     Dosage: 2 DF EVERY 4 DAYS (80 MG EVERY 4 DAYS, 140?G/H)
     Route: 062
     Dates: start: 20140528, end: 20140814

REACTIONS (2)
  - Drug ineffective [Recovered/Resolved]
  - Product substitution issue [Unknown]

NARRATIVE: CASE EVENT DATE: 20140528
